FAERS Safety Report 6128468-3 (Version None)
Quarter: 2009Q1

REPORT INFORMATION
  Report Type: 
  Country: None (occurrence: None)
  Receive Date: 20090319
  Receipt Date: 20090309
  Transmission Date: 20090719
  Serious: Yes (Hospitalization)
  Sender: FDA-Public Use
  Company Number: FRP09000294

PATIENT
  Age: 63 Year
  Sex: Female

DRUGS (4)
  1. ACTONEL [Suspect]
     Indication: OSTEOPOROSIS
     Dosage: 35 MG, 1 /WEEK, ORAL
     Route: 048
     Dates: end: 20090203
  2. SULFASALAZINE [Suspect]
     Indication: POLYARTHRITIS
     Dosage: 2 G, DAILY, ORAL
     Route: 048
     Dates: start: 20081117, end: 20090203
  3. IMIPOMP /01263201/ (PANTOPRAZOLE) 20MG [Suspect]
     Indication: HIATUS HERNIA
     Dosage: 40 MG, DAILY, ORAL
     Route: 048
     Dates: start: 20010101
  4. EFFERALGAN /00020001/ (PARACETAMOL) 500MG [Suspect]
     Indication: ARTHRALGIA
     Dosage: 1 G, 2 /DAY, ORAL
     Route: 048
     Dates: start: 20000101, end: 20090203

REACTIONS (5)
  - AGRANULOCYTOSIS [None]
  - COOMBS POSITIVE HAEMOLYTIC ANAEMIA [None]
  - HIATUS HERNIA [None]
  - POLYARTHRITIS [None]
  - TONSILLITIS [None]
